FAERS Safety Report 7533699-1 (Version None)
Quarter: 2011Q2

REPORT INFORMATION
  Report Type: 
  Country: None (occurrence: None)
  Receive Date: 20110608
  Receipt Date: 20110526
  Transmission Date: 20111010
  Serious: Yes (Other)
  Sender: FDA-Public Use
  Company Number: US-UCBSA-034136

PATIENT
  Age: 65 Year
  Sex: Female

DRUGS (1)
  1. KEPPRA [Suspect]
     Dosage: 1000MG (1.5 TABS)
     Dates: start: 20060101

REACTIONS (2)
  - HEPATOMEGALY [None]
  - LIVER FUNCTION TEST ABNORMAL [None]
